FAERS Safety Report 10149100 (Version 1)
Quarter: 2014Q2

REPORT INFORMATION
  Report Type: Spontaneous
  Country: US (occurrence: US)
  Receive Date: 20140502
  Receipt Date: 20140502
  Transmission Date: 20141212
  Serious: Yes (Life-Threatening, Hospitalization, Congenital Anomaly, Other)
  Sender: FDA-Public Use
  Company Number: US-JNJFOC-20140417210

PATIENT
  Sex: Male

DRUGS (1)
  1. TOPAMAX [Suspect]
     Indication: EPILEPSY
     Route: 064

REACTIONS (15)
  - Neonatal respiratory distress syndrome [Recovered/Resolved]
  - Feeding disorder [Recovering/Resolving]
  - Retinopathy of prematurity [Recovered/Resolved]
  - Respiratory failure [Recovered/Resolved]
  - Patent ductus arteriosus [Unknown]
  - Respiratory syncytial virus infection [Recovered/Resolved]
  - Inguinal hernia [Unknown]
  - Hydrocele [Unknown]
  - Congenital torticollis [Unknown]
  - Sepsis [Recovered/Resolved]
  - Phimosis [Unknown]
  - Motor developmental delay [Unknown]
  - Plagiocephaly [Unknown]
  - Premature baby [Unknown]
  - Foetal exposure during pregnancy [Recovered/Resolved]
